FAERS Safety Report 5981451-0 (Version None)
Quarter: 2008Q4

REPORT INFORMATION
  Report Type: 
  Country: None (occurrence: None)
  Receive Date: 20081205
  Receipt Date: 20081127
  Transmission Date: 20090506
  Serious: Yes (Hospitalization)
  Sender: FDA-Public Use
  Company Number: JP-ABBOTT-08P-087-0468729-00

PATIENT
  Age: 80 Year
  Sex: Male

DRUGS (6)
  1. LEUPROLIDE ACETATE [Suspect]
     Indication: PROSTATE CANCER STAGE III
     Route: 058
     Dates: start: 20060524, end: 20070425
  2. LEUPROLIDE ACETATE [Suspect]
     Route: 058
     Dates: start: 20070912
  3. BICALUTAMIDE [Concomitant]
     Indication: PROSTATE CANCER STAGE III
     Route: 048
     Dates: start: 20050301
  4. SENNA ALEXANDRINA LEAF [Concomitant]
     Indication: CONSTIPATION
     Route: 048
     Dates: end: 20070331
  5. MAGNESIUM OXIDE [Concomitant]
     Indication: CONSTIPATION
     Route: 048
  6. BROTIZOLAM [Concomitant]
     Indication: INSOMNIA
     Route: 048
     Dates: end: 20070430

REACTIONS (1)
  - FEMORAL NECK FRACTURE [None]
